FAERS Safety Report 12873405 (Version 2)
Quarter: 2017Q2

REPORT INFORMATION
  Report Type: Spontaneous
  Country: US (occurrence: US)
  Receive Date: 20161021
  Receipt Date: 20170420
  Transmission Date: 20170830
  Serious: Yes (Hospitalization, Disabling)
  Sender: FDA-Public Use
  Company Number: US-CELGENEUS-USA-2016104729

PATIENT
  Age: 60 Year
  Sex: Male

DRUGS (1)
  1. REVLIMID [Suspect]
     Active Substance: LENALIDOMIDE
     Indication: PLASMA CELL MYELOMA
     Dosage: 25 MILLIGRAM
     Route: 048
     Dates: start: 201609

REACTIONS (5)
  - Fatigue [Unknown]
  - Headache [Recovered/Resolved]
  - Constipation [Recovering/Resolving]
  - Adverse drug reaction [Unknown]
  - Rash [Unknown]

NARRATIVE: CASE EVENT DATE: 20161017
